FAERS Safety Report 11246149 (Version 5)
Quarter: 2016Q3

REPORT INFORMATION
  Report Type: Report from Study
  Country: US (occurrence: US)
  Receive Date: 20150708
  Receipt Date: 20160902
  Transmission Date: 20161109
  Serious: Yes (Death, Hospitalization, Other)
  Sender: FDA-Public Use
  Company Number: US-ROCHE-ITM201503IM012868

PATIENT
  Age: 81 Year
  Sex: Female
  Weight: 76.73 kg

DRUGS (4)
  1. ESBRIET [Suspect]
     Active Substance: PIRFENIDONE
     Route: 048
     Dates: start: 20150204
  2. ESBRIET [Suspect]
     Active Substance: PIRFENIDONE
     Dosage: 6 PILLS A DAY
     Route: 048
  3. ESBRIET [Suspect]
     Active Substance: PIRFENIDONE
     Indication: IDIOPATHIC PULMONARY FIBROSIS
     Dosage: MD ADVISED TO HER TAKE  3 CAPS PO TID
     Route: 048
     Dates: start: 20150310
  4. ESBRIET [Suspect]
     Active Substance: PIRFENIDONE
     Dosage: 3 PILLS A DAY
     Route: 048

REACTIONS (14)
  - Pneumonia [Unknown]
  - Fluid retention [Unknown]
  - Decreased appetite [Unknown]
  - Fatigue [Unknown]
  - Fluid retention [Unknown]
  - Swelling face [Unknown]
  - Weight decreased [Unknown]
  - Ageusia [Unknown]
  - Cardiac arrest [Fatal]
  - Oxygen saturation decreased [Unknown]
  - Diarrhoea [Unknown]
  - Asthenia [Unknown]
  - Respiratory failure [Fatal]
  - Hypotension [Unknown]

NARRATIVE: CASE EVENT DATE: 20150323
